FAERS Safety Report 23297489 (Version 1)
Quarter: 2023Q4

REPORT INFORMATION
  Report Type: Spontaneous
  Country: US (occurrence: US)
  Receive Date: 20231214
  Receipt Date: 20231214
  Transmission Date: 20240110
  Serious: No
  Sender: FDA-Public Use
  Company Number: US-AMGEN-USASP2023219084

PATIENT
  Age: 4 Year
  Sex: Female

DRUGS (7)
  1. INFLIXIMAB [Suspect]
     Active Substance: INFLIXIMAB
     Indication: Granuloma
     Dosage: 5 MILLIGRAM/KG (WEEKS 0)
     Route: 065
  2. INFLIXIMAB [Suspect]
     Active Substance: INFLIXIMAB
     Dosage: 5 MILLIGRAM/KG (WEEKS 2)
     Route: 065
  3. INFLIXIMAB [Suspect]
     Active Substance: INFLIXIMAB
     Dosage: 5 MILLIGRAM, Q4WK
     Route: 065
  4. METHYLPREDNISOLONE [Concomitant]
     Active Substance: METHYLPREDNISOLONE
     Dosage: 30 MILLIGRAM/KG QD
  5. Immunoglobulin [Concomitant]
     Dosage: 500 MILLIGRAM/KG
  6. METHOTREXATE [Concomitant]
     Active Substance: METHOTREXATE
     Dosage: 15 MILLIGRAM, QWK
  7. DAPSONE [Concomitant]
     Active Substance: DAPSONE
     Dosage: 2 MILLIGRAM/KG, QD

REACTIONS (3)
  - Methaemoglobinaemia [Unknown]
  - Drug effective for unapproved indication [Unknown]
  - Off label use [Unknown]
